FAERS Safety Report 9262742 (Version 1)
Quarter: 2013Q2

REPORT INFORMATION
  Report Type: Spontaneous
  Country: US (occurrence: US)
  Receive Date: 20130430
  Receipt Date: 20130430
  Transmission Date: 20140414
  Serious: Yes (Other)
  Sender: FDA-Public Use
  Company Number: PHEH2013US009399

PATIENT
  Sex: Male

DRUGS (7)
  1. SANDOSTATIN LAR DEPOT [Suspect]
     Indication: DIARRHOEA
     Dosage: UNK UKN, EVERY 28 DAYS
     Dates: start: 1999
  2. METFORMIN [Concomitant]
     Dosage: UNK UKN, UNK
  3. INSULIN [Concomitant]
  4. LORTAB [Concomitant]
  5. COLCRYS [Concomitant]
     Dosage: 0.6 MG, EVERY 4 DAY
  6. MAGNESIUM OXIDE [Concomitant]
     Dosage: 500 MG, 2XDAY
  7. ZOLPIDEM [Concomitant]
     Indication: INSOMNIA
     Dosage: 5 MG, UNK

REACTIONS (3)
  - Diabetes mellitus [Unknown]
  - Diarrhoea [Unknown]
  - Weight decreased [Unknown]
